FAERS Safety Report 6987322 (Version 2)
Quarter: 2013Q1

REPORT INFORMATION
  Report Type: Spontaneous
  Country: GB (occurrence: None)
  Receive Date: 20090427
  Receipt Date: 20130117
  Transmission Date: 20140127
  Serious: Yes (Other)
  Sender: FDA-Public Use
  Company Number: 2009AP001537

PATIENT
  Age: 32 Year
  Sex: Female

DRUGS (4)
  1. CLARITHROMYCIN [Suspect]
     Indication: TONSILLITIS
     Dosage: 500 MG;PO
     Route: 048
     Dates: start: 20090212
  2. CODEINE PHOSPHATE (CODEINE PHOSPHATE) [Concomitant]
  3. ACETAMINOPHEN [Concomitant]
  4. DICLOFENAC (DICLOFENAC) [Concomitant]

REACTIONS (7)
  - Aspartate aminotransferase increased [None]
  - Gamma-glutamyltransferase increased [None]
  - Alanine aminotransferase increased [None]
  - Blood alkaline phosphatase increased [None]
  - Local swelling [None]
  - Local swelling [None]
  - Chromaturia [None]
